FAERS Safety Report 8153284-0 (Version None)
Quarter: 2012Q1

REPORT INFORMATION
  Report Type: 
  Country: None (occurrence: None)
  Receive Date: 20120221
  Receipt Date: 20111031
  Transmission Date: 20120608
  Serious: Yes (Other)
  Sender: FDA-Public Use
  Company Number: GB-US-EMD SERONO, INC.-7024203

PATIENT
  Sex: Female

DRUGS (2)
  1. REBIF [Suspect]
     Indication: RELAPSING-REMITTING MULTIPLE SCLEROSIS
     Route: 058
     Dates: start: 20030701, end: 20101001
  2. REBIF [Suspect]
     Route: 058
     Dates: start: 20110701

REACTIONS (1)
  - BREAST CANCER STAGE III [None]
